FAERS Safety Report 26177146 (Version 1)
Quarter: 2025Q4

REPORT INFORMATION
  Report Type: Spontaneous
  Country: US (occurrence: US)
  Receive Date: 20251219
  Receipt Date: 20251219
  Transmission Date: 20260117
  Serious: No
  Sender: STALLERGENES
  Company Number: US-STALCOR-2025-AER-03006

PATIENT
  Age: 15 Year
  Sex: Male

DRUGS (2)
  1. PALFORZIA [Suspect]
     Active Substance: PEANUT
     Indication: Food allergy
     Dosage: DISPENSED ON 13-AUG-2025
     Route: 048
  2. DUPIXENT [Concomitant]
     Active Substance: DUPILUMAB
     Indication: Product used for unknown indication
     Dosage: 300/2 MILLILITRE

REACTIONS (1)
  - Abdominal pain [Recovered/Resolved]

NARRATIVE: CASE EVENT DATE: 20250923
